FAERS Safety Report 5050301-1 (Version None)
Quarter: 2006Q3

REPORT INFORMATION
  Report Type: 
  Country: None (occurrence: None)
  Receive Date: 20060707
  Receipt Date: 20060627
  Transmission Date: 20061208
  Serious: Yes (Death)
  Sender: FDA-Public Use
  Company Number: 2006-DE-02849GD

PATIENT
  Age: 47 Year
  Sex: Female

DRUGS (1)
  1. LITHIUM CARBONATE [Suspect]

REACTIONS (4)
  - CEREBRAL HAEMORRHAGE [None]
  - CONVULSION [None]
  - COORDINATION ABNORMAL [None]
  - HYPOXIA [None]
